FAERS Safety Report 8341591-8 (Version None)
Quarter: 2012Q2

REPORT INFORMATION
  Report Type: 
  Country: None (occurrence: None)
  Receive Date: 20120502
  Receipt Date: 20120424
  Transmission Date: 20120825
  Serious: Yes (Death, Hospitalization)
  Sender: FDA-Public Use
  Company Number: DAV-AE-MTX-12-33

PATIENT
  Age: 62 Year
  Sex: Male
  Weight: 59.8 kg

DRUGS (10)
  1. PANALDINE (TICLOPIDINE HYDROCHLORIDE) FILM-COATED TABLET [Concomitant]
  2. TACROLIMUS (TACROLIMU) [Concomitant]
  3. FAMOTIDINE [Concomitant]
  4. ENBREL [Suspect]
     Indication: RHEUMATOID ARTHRITIS
     Dosage: UNK, SUBCUTANEOUS
     Route: 058
  5. MICARDIS [Concomitant]
  6. RHEUMATREX [Suspect]
     Indication: RHEUMATOID ARTHRITIS
     Dosage: 2MG, QWK 2MG, 1X/DAY, ORAL
     Route: 048
     Dates: start: 20080101, end: 20080501
  7. RHEUMATREX [Suspect]
     Indication: RHEUMATOID ARTHRITIS
     Dosage: 2MG, QWK 2MG, 1X/DAY, ORAL
     Route: 048
     Dates: start: 20100802, end: 20101227
  8. PREDNISOLONE [Suspect]
     Dosage: UNK, ORAL 30 MG, UNK
     Route: 048
     Dates: start: 20100301
  9. PREDNISOLONE [Suspect]
     Dosage: UNK, ORAL 30 MG, UNK
     Route: 048
     Dates: start: 20080101
  10. BAKTAR (SULFAMETHOXAZOLE) (TRIMETHOPRIM) TABLET [Concomitant]

REACTIONS (6)
  - INTERSTITIAL LUNG DISEASE [None]
  - RHEUMATOID ARTHRITIS [None]
  - RHEUMATOID LUNG [None]
  - RENAL IMPAIRMENT [None]
  - CONDITION AGGRAVATED [None]
  - PNEUMONIA BACTERIAL [None]
